FAERS Safety Report 4775819-8 (Version None)
Quarter: 2005Q3

REPORT INFORMATION
  Report Type: 
  Country: None (occurrence: None)
  Receive Date: 20050922
  Receipt Date: 20050616
  Transmission Date: 20060218
  Serious: Yes (Hospitalization, Other)
  Sender: FDA-Public Use
  Company Number: FR-AMGEN-UK139014

PATIENT
  Age: 79 Year
  Sex: Female

DRUGS (7)
  1. ARANESP [Suspect]
     Indication: ANAEMIA
     Route: 058
     Dates: start: 20050602, end: 20050609
  2. LASILIX [Concomitant]
     Route: 065
  3. AROMASIN [Concomitant]
     Route: 065
  4. ATARAX [Concomitant]
     Route: 065
     Dates: start: 20050520
  5. DILTIAZEM HCL [Concomitant]
     Route: 065
     Dates: start: 20050528, end: 20050615
  6. PREVISCAN [Concomitant]
     Route: 065
     Dates: start: 20050610
  7. NITROGLYCERIN [Concomitant]
     Route: 065
     Dates: start: 20050603

REACTIONS (3)
  - ERYTHEMA [None]
  - PRURITUS [None]
  - PURPURA [None]
